FAERS Safety Report 18024731 (Version 1)
Quarter: 2020Q3

REPORT INFORMATION
  Report Type: Spontaneous
  Country: US (occurrence: US)
  Receive Date: 20200714
  Receipt Date: 20200714
  Transmission Date: 20201103
  Serious: No
  Sender: FDA-Public Use
  Company Number: None

PATIENT
  Age: 69 Year
  Sex: Male
  Weight: 62 kg

DRUGS (2)
  1. ALUMINUM HYDROXIDE/MAGNESIUM HYDROXIDE (ALUMINUM HYDROXIDE 22MG/MAGNES [Suspect]
     Active Substance: ALUMINUM HYDROXIDE\MAGNESIUM HYDROXIDE
     Indication: THROAT IRRITATION
     Dates: start: 20200401, end: 20200402
  2. DIPHENHYDRAMINE/LIDOCAINE/NYSTATIN (DIPHENHYDRAMINE/LIDOCAINE/NYSTATIN [Suspect]
     Active Substance: DIPHENHYDRAMINE\LIDOCAINE\NYSTATIN
     Indication: THROAT IRRITATION
     Dates: start: 20200401, end: 20200402

REACTIONS (2)
  - Swelling [None]
  - Respiratory failure [None]

NARRATIVE: CASE EVENT DATE: 20200404
